FAERS Safety Report 7804912-8 (Version None)
Quarter: 2011Q4

REPORT INFORMATION
  Report Type: 
  Country: None (occurrence: None)
  Receive Date: 20111010
  Receipt Date: 20110929
  Transmission Date: 20120403
  Serious: Yes (Death, Other)
  Sender: FDA-Public Use
  Company Number: US-BRISTOL-MYERS SQUIBB COMPANY-15965593

PATIENT
  Age: 73 Year
  Sex: Male

DRUGS (3)
  1. ORENCIA [Suspect]
     Indication: RHEUMATOID ARTHRITIS
     Dosage: INTERRUPTED FOR 1MONTHS
     Route: 042
     Dates: start: 20080201, end: 20110706
  2. ARAVA [Concomitant]
  3. PREDNISONE [Concomitant]

REACTIONS (3)
  - CARDIAC ARREST [None]
  - RESPIRATORY FAILURE [None]
  - ATYPICAL MYCOBACTERIUM TEST POSITIVE [None]
